FAERS Safety Report 13066437 (Version 3)
Quarter: 2017Q2

REPORT INFORMATION
  Report Type: Spontaneous
  Country: TR (occurrence: TR)
  Receive Date: 20161227
  Receipt Date: 20170510
  Transmission Date: 20170830
  Serious: Yes (Congenital Anomaly)
  Sender: FDA-Public Use
  Company Number: TR-ABBVIE-16P-161-1822397-00

PATIENT
  Sex: Male
  Weight: 21 kg

DRUGS (1)
  1. VALPROIC ACID. [Suspect]
     Active Substance: VALPROIC ACID
     Indication: MATERNAL EXPOSURE TIMING UNSPECIFIED
     Route: 064

REACTIONS (11)
  - Speech disorder [Unknown]
  - Growth retardation [Unknown]
  - Developmental delay [Unknown]
  - Foetal anticonvulsant syndrome [Unknown]
  - Congenital nose malformation [Unknown]
  - Finger deformity [Unknown]
  - Congenital foot malformation [Unknown]
  - Cryptorchism [Unknown]
  - Dysmorphism [Unknown]
  - Pectus excavatum [Unknown]
  - Foetal exposure during pregnancy [Unknown]
